FAERS Safety Report 24156599 (Version 2)
Quarter: 2024Q3

REPORT INFORMATION
  Report Type: Report from Study
  Country: US (occurrence: US)
  Receive Date: 20240731
  Receipt Date: 20240806
  Transmission Date: 20241016
  Serious: Yes (Hospitalization)
  Sender: MYLAN
  Company Number: US-MYLANLABS-2024M1070924

PATIENT
  Age: 63 Year
  Sex: Female
  Weight: 73.6 kg

DRUGS (1)
  1. REVATIO [Suspect]
     Active Substance: SILDENAFIL CITRATE
     Indication: Pulmonary hypertension
     Dosage: 20 MILLIGRAM, TID (THREE TIMES A DAY)
     Route: 048
     Dates: start: 20240704

REACTIONS (5)
  - Myoclonus [Unknown]
  - Syncope [Recovered/Resolved]
  - Dizziness [Unknown]
  - Fall [Unknown]
  - Right ventricular hypertrophy [Unknown]

NARRATIVE: CASE EVENT DATE: 20240722
